FAERS Safety Report 22537408 (Version 2)
Quarter: 2023Q2

REPORT INFORMATION
  Report Type: Spontaneous
  Country: US (occurrence: US)
  Receive Date: 20230608
  Receipt Date: 20230620
  Transmission Date: 20230721
  Serious: Yes (Other)
  Sender: FDA-Public Use
  Company Number: US-TEVA-2023-US-2893288

PATIENT
  Age: 20 Year

DRUGS (2)
  1. ESCITALOPRAM [Suspect]
     Active Substance: ESCITALOPRAM OXALATE
     Indication: Intentional product misuse
     Dosage: INGESTED 1,780MG OF ESCITALOPRAM.
     Route: 065
  2. ESCITALOPRAM [Suspect]
     Active Substance: ESCITALOPRAM OXALATE
     Indication: Overdose

REACTIONS (4)
  - Electrocardiogram QRS complex prolonged [Recovering/Resolving]
  - Bundle branch block right [Recovering/Resolving]
  - Intentional product misuse [Unknown]
  - Overdose [Unknown]
